FAERS Safety Report 18487125 (Version 1)
Quarter: 2020Q4

REPORT INFORMATION
  Report Type: Report from Study
  Country: JP (occurrence: JP)
  Receive Date: 20201110
  Receipt Date: 20201110
  Transmission Date: 20210114
  Serious: Yes (Hospitalization, Other)
  Sender: FDA-Public Use
  Company Number: JP-GILEAD-2020-0502775

PATIENT
  Age: 87 Year
  Sex: Female
  Weight: 45 kg

DRUGS (3)
  1. REMDESIVIR. [Suspect]
     Active Substance: REMDESIVIR
     Dosage: 100 MG, QD
     Route: 042
     Dates: start: 20200729, end: 20200803
  2. RINDERON [BETAMETHASONE SODIUM PHOSPHATE] [Concomitant]
     Active Substance: BETAMETHASONE SODIUM PHOSPHATE
     Indication: COVID-19
     Dates: start: 20200731, end: 20200804
  3. REMDESIVIR. [Suspect]
     Active Substance: REMDESIVIR
     Indication: COVID-19
     Dosage: 200 MG, QD
     Route: 042
     Dates: start: 20200728, end: 20200728

REACTIONS (1)
  - Renal disorder [Recovering/Resolving]

NARRATIVE: CASE EVENT DATE: 20200803
